FAERS Safety Report 4771030-5 (Version None)
Quarter: 2005Q3

REPORT INFORMATION
  Report Type: 
  Country: None (occurrence: None)
  Receive Date: 20050914
  Receipt Date: 20050830
  Transmission Date: 20060218
  Serious: Yes (Hospitalization)
  Sender: FDA-Public Use
  Company Number: FR_050807020

PATIENT
  Age: 17 Year
  Sex: Male
  Weight: 60 kg

DRUGS (4)
  1. ZYPREXA [Suspect]
     Indication: HALLUCINATION
     Dosage: 10 MG/1 DAY
     Dates: start: 20050627, end: 20050711
  2. THERALENE (ALIMEMAZINE TARTRATE) [Concomitant]
  3. ZOLOFT [Concomitant]
  4. HEPTAMINOL [Concomitant]

REACTIONS (2)
  - HEPATOCELLULAR DAMAGE [None]
  - HYPERTRIGLYCERIDAEMIA [None]
